FAERS Safety Report 5846944-5 (Version None)
Quarter: 2008Q3

REPORT INFORMATION
  Report Type: 
  Country: None (occurrence: None)
  Receive Date: 20080815
  Receipt Date: 20080805
  Transmission Date: 20090109
  Serious: Yes (Hospitalization)
  Sender: FDA-Public Use
  Company Number: FR-ELI_LILLY_AND_COMPANY-FR200808000757

PATIENT
  Sex: Female

DRUGS (4)
  1. PROZAC [Suspect]
     Dosage: 10 MG, DAILY (1/D)
     Route: 048
     Dates: start: 20080616, end: 20080627
  2. ARICEPT [Concomitant]
     Dosage: 10 MG, DAILY (1/D)
     Route: 048
     Dates: start: 20080616
  3. PRAZEPAM [Concomitant]
     Route: 048
     Dates: start: 20080616
  4. ZOPICLONE [Concomitant]
     Dosage: 7.5 MG, DAILY (1/D)
     Route: 048
     Dates: start: 20080616

REACTIONS (3)
  - HEPATIC ENZYME INCREASED [None]
  - INFLAMMATION [None]
  - LUNG DISORDER [None]
